FAERS Safety Report 16425702 (Version 1)
Quarter: 2019Q2

REPORT INFORMATION
  Report Type: Spontaneous
  Country: GB (occurrence: GB)
  Receive Date: 20190613
  Receipt Date: 20190613
  Transmission Date: 20190711
  Serious: Yes (Hospitalization)
  Sender: FDA-Public Use
  Company Number: GB-TEVA-2019-GB-1061568

PATIENT
  Age: 71 Year
  Sex: Female

DRUGS (8)
  1. BRALTUS [Concomitant]
     Active Substance: TIOTROPIUM BROMIDE
     Dosage: CAPSULE VIA ZONDA INHALER
  2. CO-DYDRAMOL [Concomitant]
     Active Substance: ACETAMINOPHEN\DIHYDROCODEINE
     Dosage: 10MG/500MG AT NIGHT.
  3. THEOPHYLLINE [Concomitant]
     Active Substance: THEOPHYLLINE ANHYDROUS
  4. NAPROXEN. [Suspect]
     Active Substance: NAPROXEN
     Dosage: 1000MG
  5. SERETIDE [Concomitant]
     Active Substance: FLUTICASONE PROPIONATE\SALMETEROL XINAFOATE
     Dosage: PUFF
  6. SALBUTAMOL [Concomitant]
     Active Substance: ALBUTEROL
  7. OMEPRAZOLE. [Concomitant]
     Active Substance: OMEPRAZOLE
  8. CARBOCISTEINE [Concomitant]
     Active Substance: CARBOCYSTEINE
     Dosage: 500MG TWICE DAILY

REACTIONS (2)
  - Fatigue [Unknown]
  - Gastritis [Recovered/Resolved]
